FAERS Safety Report 7573325-9 (Version None)
Quarter: 2011Q2

REPORT INFORMATION
  Report Type: 
  Country: None (occurrence: None)
  Receive Date: 20110627
  Receipt Date: 20110615
  Transmission Date: 20111010
  Serious: Yes (Hospitalization, Other)
  Sender: FDA-Public Use
  Company Number: PHHY2010JP88368

PATIENT
  Sex: Female
  Weight: 46 kg

DRUGS (11)
  1. ZETIA [Concomitant]
     Dosage: 10 MG, UNK
     Route: 048
  2. ZETIA [Concomitant]
     Dosage: 05 MG, UNK
     Route: 048
  3. ZOMETA [Suspect]
     Indication: METASTASES TO BONE
     Route: 042
     Dates: start: 20060701, end: 20080601
  4. NORVASC [Concomitant]
     Dosage: 05 MG, UNK
     Route: 048
  5. METFORMIN HCL [Concomitant]
     Dosage: 500 MG, UNK
     Route: 048
  6. ARIMIDEX [Concomitant]
     Dosage: 1 DF, QD
     Dates: start: 20060701, end: 20080601
  7. ARIMIDEX [Concomitant]
     Dosage: 1 MG, UNK
     Route: 048
     Dates: start: 20060701, end: 20080601
  8. HYSRON [Concomitant]
     Dosage: 05 MG, UNK
     Route: 048
     Dates: start: 20060701, end: 20080601
  9. SPIRIVA [Concomitant]
     Dosage: 18 UG, UNK
  10. AMARYL [Concomitant]
  11. CANDESARTAN CILEXETIL [Concomitant]
     Dosage: 08 MG, UNK
     Route: 048

REACTIONS (14)
  - PURULENT DISCHARGE [None]
  - EXPOSED BONE IN JAW [None]
  - IMPAIRED HEALING [None]
  - BONE DISORDER [None]
  - PARAESTHESIA ORAL [None]
  - JAW FRACTURE [None]
  - OSTEOMYELITIS [None]
  - CELLULITIS [None]
  - GINGIVAL SWELLING [None]
  - GINGIVAL PAIN [None]
  - GINGIVAL ERYTHEMA [None]
  - FIBROSIS [None]
  - OSTEONECROSIS [None]
  - ABSCESS ORAL [None]
